FAERS Safety Report 7281655-3 (Version None)
Quarter: 2011Q1

REPORT INFORMATION
  Report Type: 
  Country: None (occurrence: None)
  Receive Date: 20110208
  Receipt Date: 20110204
  Transmission Date: 20110831
  Serious: Yes (Death, Other)
  Sender: FDA-Public Use
  Company Number: PHHY2010US69672

PATIENT
  Sex: Male
  Weight: 66 kg

DRUGS (1)
  1. GLEEVEC [Suspect]
     Indication: GASTROINTESTINAL STROMAL TUMOUR
     Dosage: 600 MG, QD
     Route: 048
     Dates: start: 20040824

REACTIONS (3)
  - PNEUMONIA [None]
  - ASPIRATION [None]
  - RESPIRATORY FAILURE [None]
